FAERS Safety Report 11243467 (Version 1)
Quarter: 2015Q3

REPORT INFORMATION
  Report Type: Spontaneous
  Country: US (occurrence: None)
  Receive Date: 20150702
  Receipt Date: 20150702
  Transmission Date: 20151125
  Serious: Yes (Other)
  Sender: FDA-Public Use
  Company Number: None

PATIENT
  Age: 70 Year
  Sex: Male
  Weight: 74.84 kg

DRUGS (12)
  1. LUTEIN WITH ZEAXANTHIN [Concomitant]
  2. BIOTIN [Concomitant]
     Active Substance: BIOTIN
  3. RESVERATOL [Concomitant]
  4. LOSARTAN. [Concomitant]
     Active Substance: LOSARTAN
  5. ASPIRIN. [Concomitant]
     Active Substance: ASPIRIN
  6. COQ10 [Concomitant]
     Active Substance: UBIDECARENONE
  7. LIALDA [Suspect]
     Active Substance: MESALAMINE
     Indication: COLITIS
     Dosage: 2 PILLS
     Route: 048
     Dates: start: 20150604, end: 20150629
  8. ALIGN PROBIOTIC [Concomitant]
  9. FELODIPINE. [Concomitant]
     Active Substance: FELODIPINE
  10. CINNAMON EXTRACT [Concomitant]
  11. MULTIVITAMIN [Concomitant]
     Active Substance: VITAMINS
  12. ATORVASTIN [Concomitant]
     Active Substance: ATORVASTATIN

REACTIONS (3)
  - Abdominal pain upper [None]
  - Haematemesis [None]
  - Vomiting [None]

NARRATIVE: CASE EVENT DATE: 20150629
